FAERS Safety Report 5080586-7 (Version None)
Quarter: 2006Q3

REPORT INFORMATION
  Report Type: 
  Country: None (occurrence: None)
  Receive Date: 20060815
  Receipt Date: 20060811
  Transmission Date: 20061208
  Serious: Yes (Other)
  Sender: FDA-Public Use
  Company Number: US-GLAXOSMITHKLINE-A0616342A

PATIENT
  Sex: Male

DRUGS (2)
  1. WELLBUTRIN XL [Suspect]
     Indication: DEPRESSION
     Dosage: 300MG IN THE MORNING
     Route: 048
  2. LEXAPRO [Concomitant]

REACTIONS (4)
  - FALL [None]
  - INCOHERENT [None]
  - SYNCOPE [None]
  - TREMOR [None]
